FAERS Safety Report 16740606 (Version 12)
Quarter: 2022Q2

REPORT INFORMATION
  Report Type: Spontaneous
  Country: US (occurrence: US)
  Receive Date: 20190826
  Receipt Date: 20220530
  Transmission Date: 20220721
  Serious: Yes (Hospitalization, Other)
  Sender: FDA-Public Use
  Company Number: US-NOVARTISPH-PHEH2019US035239

PATIENT
  Age: 7 Month
  Sex: Male
  Weight: 8.9 kg

DRUGS (1)
  1. KYMRIAH [Suspect]
     Active Substance: TISAGENLECLEUCEL
     Indication: Acute lymphocytic leukaemia recurrent
     Dosage: 1.57 X10E7 CAR POSITIVE VIABLE T CELLS, ONCE/SINGLE
     Route: 042
     Dates: start: 20190701

REACTIONS (8)
  - Cytokine release syndrome [Recovered/Resolved]
  - Acute lymphocytic leukaemia recurrent [Not Recovered/Not Resolved]
  - Leukocytosis [Unknown]
  - Neutrophilia [Unknown]
  - Monocytosis [Unknown]
  - Lymphopenia [Unknown]
  - Basophilia [Unknown]
  - Treatment failure [Unknown]

NARRATIVE: CASE EVENT DATE: 20190709
